FAERS Safety Report 14540963 (Version 1)
Quarter: 2018Q1

REPORT INFORMATION
  Report Type: Spontaneous
  Country: GB (occurrence: GB)
  Receive Date: 20180216
  Receipt Date: 20180216
  Transmission Date: 20180509
  Serious: Yes (Life-Threatening, Hospitalization)
  Sender: FDA-Public Use
  Company Number: US-OTSUKA-KJ20043211

PATIENT
  Age: 68 Year
  Sex: Female

DRUGS (6)
  1. ESOMEPRAZOLE [Concomitant]
     Active Substance: ESOMEPRAZOLE
     Indication: BARRETT^S OESOPHAGUS
     Dosage: 20 MG, QD
     Route: 048
  2. ABILIFY [Suspect]
     Active Substance: ARIPIPRAZOLE
     Indication: BIPOLAR I DISORDER
     Dosage: 15 MG, UNK
     Route: 048
     Dates: start: 200407, end: 20040907
  3. BENDROFLUMETHIAZIDE [Concomitant]
     Active Substance: BENDROFLUMETHIAZIDE
     Indication: BLOOD PRESSURE INCREASED
     Dosage: 2.5 MG, QD
     Route: 048
  4. LOPERAMIDE [Concomitant]
     Active Substance: LOPERAMIDE
     Indication: DIARRHOEA
     Dosage: 4 MG, BID
     Route: 048
  5. MIRTAZAPINE. [Suspect]
     Active Substance: MIRTAZAPINE
     Indication: DEPRESSION
     Dosage: 45 MG, QD
     Route: 048
     Dates: start: 200302, end: 20040902
  6. DIAZEPAM. [Concomitant]
     Active Substance: DIAZEPAM
     Indication: AGITATION
     Dosage: UNK
     Route: 065

REACTIONS (1)
  - Hypoplastic anaemia [Not Recovered/Not Resolved]

NARRATIVE: CASE EVENT DATE: 20040728
